FAERS Safety Report 5080617-4 (Version None)
Quarter: 2006Q3

REPORT INFORMATION
  Report Type: 
  Country: None (occurrence: None)
  Receive Date: 20060815
  Receipt Date: 20060526
  Transmission Date: 20061208
  Serious: Yes (Hospitalization)
  Sender: FDA-Public Use
  Company Number: US-ROCHE-449897

PATIENT
  Age: 43 Year
  Sex: Female
  Weight: 59 kg

DRUGS (2)
  1. PEGASYS [Suspect]
     Route: 058
     Dates: start: 20050916
  2. COPEGUS [Suspect]
     Route: 048
     Dates: start: 20050916

REACTIONS (40)
  - ABNORMAL BEHAVIOUR [None]
  - ANGER [None]
  - ANXIETY [None]
  - ARTHRALGIA [None]
  - ASTHENIA [None]
  - CHILLS [None]
  - CRYING [None]
  - DEPRESSION [None]
  - DIZZINESS [None]
  - DYSPNOEA [None]
  - EMOTIONAL DISORDER [None]
  - FACE INJURY [None]
  - FALL [None]
  - FATIGUE [None]
  - FRUSTRATION [None]
  - HEADACHE [None]
  - IMMUNOSUPPRESSION [None]
  - INFECTION [None]
  - JOB DISSATISFACTION [None]
  - MIGRAINE [None]
  - MOUTH INJURY [None]
  - MOUTH ULCERATION [None]
  - MYALGIA [None]
  - NASOPHARYNGITIS [None]
  - NERVOUSNESS [None]
  - OEDEMA PERIPHERAL [None]
  - PAIN [None]
  - PAIN IN EXTREMITY [None]
  - PHARYNGEAL ULCERATION [None]
  - PHARYNGITIS [None]
  - PNEUMONIA [None]
  - PRURITUS [None]
  - PSYCHOTIC DISORDER [None]
  - PYREXIA [None]
  - TEARFULNESS [None]
  - TOOTH INJURY [None]
  - VASODILATATION [None]
  - VISION BLURRED [None]
  - WHITE BLOOD CELL COUNT ABNORMAL [None]
  - WHITE BLOOD CELL COUNT DECREASED [None]
